FAERS Safety Report 13344331 (Version 1)
Quarter: 2017Q1

REPORT INFORMATION
  Report Type: Report from Study
  Country: IT (occurrence: IT)
  Receive Date: 20170317
  Receipt Date: 20170317
  Transmission Date: 20170428
  Serious: Yes (Death)
  Sender: FDA-Public Use
  Company Number: IT-BAXTER-2017BAX010743

PATIENT
  Sex: Male

DRUGS (28)
  1. ETOPOSIDE. [Suspect]
     Active Substance: ETOPOSIDE
     Indication: MULTIPLE-DRUG RESISTANCE
  2. METHOTREXATE. [Suspect]
     Active Substance: METHOTREXATE
     Indication: GERM CELL NEOPLASM
  3. METHOTREXATE. [Suspect]
     Active Substance: METHOTREXATE
     Indication: MULTIPLE-DRUG RESISTANCE
  4. ENDOXAN BAXTER [Suspect]
     Active Substance: CYCLOPHOSPHAMIDE
     Indication: GERM CELL NEOPLASM
  5. VINCRISTINE [Suspect]
     Active Substance: VINCRISTINE
     Indication: RECURRENT CANCER
     Dosage: MAXIMUM OF 2 GRAMS ON DAY 8
     Route: 065
  6. ENDOXAN BAXTER [Suspect]
     Active Substance: CYCLOPHOSPHAMIDE
     Indication: REFRACTORY CANCER
  7. ENDOXAN BAXTER [Suspect]
     Active Substance: CYCLOPHOSPHAMIDE
     Indication: MULTIPLE-DRUG RESISTANCE
  8. DACTINOMYCIN [Suspect]
     Active Substance: DACTINOMYCIN
     Indication: RECURRENT CANCER
     Dosage: DAY 1 AND 2
     Route: 040
  9. NORMAL SALINE [Concomitant]
     Active Substance: SODIUM CHLORIDE
     Dosage: WITH 200MG/M2 OF METHOTREXATE ON DAY 1
     Route: 065
  10. DACTINOMYCIN [Suspect]
     Active Substance: DACTINOMYCIN
     Indication: REFRACTORY CANCER
  11. METHOTREXATE. [Suspect]
     Active Substance: METHOTREXATE
     Indication: RECURRENT CANCER
     Dosage: DAY 1, IN 100 ML OF SALINE OVER 15 MIN
     Route: 065
  12. FOLINIC ACID [Suspect]
     Active Substance: LEUCOVORIN
     Indication: RECURRENT CANCER
     Dosage: ON DAY 2, STARTING 24HR START OF METHOTREXATE
     Route: 048
  13. FOLINIC ACID [Suspect]
     Active Substance: LEUCOVORIN
     Indication: GERM CELL NEOPLASM
  14. NORMAL SALINE [Concomitant]
     Active Substance: SODIUM CHLORIDE
     Indication: VEHICLE SOLUTION USE
     Dosage: WITH 100MG/M2 OF ETOPOSIDE DAY 1 AND 2
     Route: 065
  15. ETOPOSIDE. [Suspect]
     Active Substance: ETOPOSIDE
     Indication: RECURRENT CANCER
     Dosage: DAY 1 AND 2, IN 250ML OF NORMAL SALINE OVER 1 HOUR
     Route: 065
  16. ETOPOSIDE. [Suspect]
     Active Substance: ETOPOSIDE
     Indication: REFRACTORY CANCER
  17. ETOPOSIDE. [Suspect]
     Active Substance: ETOPOSIDE
     Indication: GERM CELL NEOPLASM
  18. FOLINIC ACID [Suspect]
     Active Substance: LEUCOVORIN
     Indication: MULTIPLE-DRUG RESISTANCE
  19. NORMAL SALINE [Concomitant]
     Active Substance: SODIUM CHLORIDE
     Dosage: WITH 100MG/M2 OF METHOTREXATE ON DAY 1
     Route: 065
  20. ENDOXAN BAXTER [Suspect]
     Active Substance: CYCLOPHOSPHAMIDE
     Indication: RECURRENT CANCER
     Dosage: ON DAY 8, IN 250ML OF NORMAL SALINE OVER 30 MINUTES
     Route: 065
  21. DACTINOMYCIN [Suspect]
     Active Substance: DACTINOMYCIN
     Indication: GERM CELL NEOPLASM
  22. VINCRISTINE [Suspect]
     Active Substance: VINCRISTINE
     Indication: MULTIPLE-DRUG RESISTANCE
  23. NORMAL SALINE [Concomitant]
     Active Substance: SODIUM CHLORIDE
     Dosage: WITH 600 MG/M2 CYCLOPHOSPHAMIDE ON DAY 8
     Route: 065
  24. DACTINOMYCIN [Suspect]
     Active Substance: DACTINOMYCIN
     Indication: MULTIPLE-DRUG RESISTANCE
  25. METHOTREXATE. [Suspect]
     Active Substance: METHOTREXATE
     Indication: REFRACTORY CANCER
     Dosage: DAY 1, IN 500ML OF NORMAL SALINE OVER 12 HOURS
     Route: 065
  26. VINCRISTINE [Suspect]
     Active Substance: VINCRISTINE
     Indication: REFRACTORY CANCER
  27. VINCRISTINE [Suspect]
     Active Substance: VINCRISTINE
     Indication: GERM CELL NEOPLASM
  28. FOLINIC ACID [Suspect]
     Active Substance: LEUCOVORIN
     Indication: REFRACTORY CANCER

REACTIONS (1)
  - Cerebral haemorrhage [Fatal]
